FAERS Safety Report 5340110-8 (Version None)
Quarter: 2007Q2

REPORT INFORMATION
  Report Type: 
  Country: None (occurrence: None)
  Receive Date: 20070525
  Receipt Date: 20070525
  Transmission Date: 20071010
  Serious: Yes (Hospitalization)
  Sender: FDA-Public Use
  Company Number: None

PATIENT
  Age: 85 Year
  Sex: Male
  Weight: 83 kg

DRUGS (9)
  1. ALBUTEROL [Suspect]
     Indication: CHRONIC OBSTRUCTIVE PULMONARY DISEASE
     Dosage: 2.5MG PRN + QID NEBS
  2. ALBUTEROL [Suspect]
     Indication: DYSPNOEA
     Dosage: 2.5MG PRN + QID NEBS
  3. LIPITOR [Concomitant]
  4. ADVAIR DISKUS 100/50 [Concomitant]
  5. .. [Concomitant]
  6. ASPIRIN [Concomitant]
  7. SPIRIVA [Concomitant]
  8. SOLU-MEDROL [Concomitant]
  9. ATROVENT [Concomitant]

REACTIONS (5)
  - ATRIAL FIBRILLATION [None]
  - CHRONIC OBSTRUCTIVE PULMONARY DISEASE [None]
  - CONDITION AGGRAVATED [None]
  - DYSPNOEA [None]
  - WHEEZING [None]
